FAERS Safety Report 14509947 (Version 2)
Quarter: 2018Q2

REPORT INFORMATION
  Report Type: Spontaneous
  Country: US (occurrence: US)
  Receive Date: 20180209
  Receipt Date: 20180422
  Transmission Date: 20180711
  Serious: Yes (Death, Hospitalization, Other)
  Sender: FDA-Public Use
  Company Number: US-APOTEX-2018AP006606

PATIENT
  Age: 51 Year
  Sex: Male

DRUGS (1)
  1. AMLODIPINE BESYLATE. [Suspect]
     Active Substance: AMLODIPINE BESYLATE
     Indication: PRODUCT USED FOR UNKNOWN INDICATION
     Dosage: 50 DF, SINGLE
     Route: 065

REACTIONS (12)
  - Pulmonary oedema [Fatal]
  - Shock [Fatal]
  - Peripheral ischaemia [Fatal]
  - Suicide attempt [Fatal]
  - Left ventricular dysfunction [Fatal]
  - Multiple organ dysfunction syndrome [Fatal]
  - Lactic acidosis [Fatal]
  - Intentional overdose [Fatal]
  - Hyperglycaemia [Fatal]
  - Pupillary reflex impaired [Fatal]
  - Ventricular hypokinesia [Fatal]
  - Toxicity to various agents [Fatal]
